FAERS Safety Report 9797447 (Version 1)
Quarter: 2014Q1

REPORT INFORMATION
  Report Type: Spontaneous
  Country: RU (occurrence: RU)
  Receive Date: 20140106
  Receipt Date: 20140106
  Transmission Date: 20141002
  Serious: Yes (Other)
  Sender: FDA-Public Use
  Company Number: PHHY2013RU152302

PATIENT
  Age: 54 Year
  Sex: Female

DRUGS (1)
  1. MIACALCIC [Suspect]
     Route: 030

REACTIONS (4)
  - Altered state of consciousness [Unknown]
  - Dizziness [Unknown]
  - Nausea [Unknown]
  - Vomiting [Unknown]
